FAERS Safety Report 8458143-1 (Version None)
Quarter: 2012Q2

REPORT INFORMATION
  Report Type: 
  Country: None (occurrence: None)
  Receive Date: 20120622
  Receipt Date: 20120612
  Transmission Date: 20120825
  Serious: Yes (Hospitalization)
  Sender: FDA-Public Use
  Company Number: US-JNJFOC-20120606312

PATIENT
  Sex: Male
  Weight: 117.94 kg

DRUGS (6)
  1. ALL OTHER THERAPEUTICS [Concomitant]
     Indication: NUTRITIONAL SUPPORT
     Dosage: INFUSIONS IN THE WINTER TIME SEPTEMBER THROUGH APRIL
     Route: 042
     Dates: start: 20100101
  2. OXYGEN [Concomitant]
     Indication: SLEEP APNOEA SYNDROME
     Dosage: 3.5 LITERS
     Route: 065
     Dates: start: 20090101
  3. HYDROXYCHLOROQUINE SULFATE [Concomitant]
     Indication: ARTHRITIS
     Route: 048
     Dates: start: 20120401
  4. PREDNISONE TAB [Concomitant]
     Indication: INFLAMMATION
     Route: 048
  5. OXYGEN [Concomitant]
     Indication: CHRONIC OBSTRUCTIVE PULMONARY DISEASE
     Dosage: 3.5 LITERS
     Route: 065
     Dates: start: 20090101
  6. REMICADE [Suspect]
     Indication: POLYARTHRITIS
     Route: 042
     Dates: start: 20120501, end: 20120501

REACTIONS (13)
  - INFUSION RELATED REACTION [None]
  - DIZZINESS [None]
  - ACNE [None]
  - SWELLING [None]
  - DYSPNOEA [None]
  - PRURITUS [None]
  - PARAESTHESIA [None]
  - LOSS OF CONSCIOUSNESS [None]
  - ASTHENIA [None]
  - NAUSEA [None]
  - BLOOD PRESSURE IMMEASURABLE [None]
  - ERYTHEMA [None]
  - HYPERHIDROSIS [None]
